FAERS Safety Report 5096590-9 (Version None)
Quarter: 2006Q3

REPORT INFORMATION
  Report Type: 
  Country: None (occurrence: None)
  Receive Date: 20060830
  Receipt Date: 20060817
  Transmission Date: 20061208
  Serious: Yes (Life-Threatening)
  Sender: FDA-Public Use
  Company Number: 112105ISR

PATIENT
  Age: 71 Year
  Sex: Male

DRUGS (8)
  1. IPRATROPIUM BROMIDE [Suspect]
     Indication: RADIOTHERAPY
     Dosage: RESPIRATORY
     Route: 055
     Dates: start: 20060627, end: 20060627
  2. IPRATROPIUM BROMIDE [Suspect]
     Indication: RESPIRATORY THERAPY
     Dosage: RESPIRATORY
     Route: 055
     Dates: start: 20060627, end: 20060627
  3. TERBUTALINE [Suspect]
     Indication: RADIOTHERAPY
     Dosage: RESPIRATORY
     Route: 055
     Dates: start: 20060628, end: 20060628
  4. TERBUTALINE [Suspect]
     Indication: RESPIRATORY THERAPY
     Dosage: RESPIRATORY
     Route: 055
     Dates: start: 20060628, end: 20060628
  5. ASPIRIN [Concomitant]
  6. DEXAMETHASONE TAB [Concomitant]
  7. SPIRIVA [Concomitant]
  8. SYMBIOCORT (BUDESONIDE, BUDESONIDE MICRONISED, FORMOTEROL, FORMOTEROL [Concomitant]

REACTIONS (1)
  - HYPERVENTILATION [None]
